FAERS Safety Report 13168360 (Version 1)
Quarter: 2017Q1

REPORT INFORMATION
  Report Type: Spontaneous
  Country: US (occurrence: US)
  Receive Date: 20170131
  Receipt Date: 20170131
  Transmission Date: 20170428
  Serious: No
  Sender: FDA-Public Use
  Company Number: US-ASTRAZENECA-2017SE11265

PATIENT
  Age: 85 Year
  Sex: Female

DRUGS (7)
  1. TRIAMCINOLON E [Concomitant]
     Indication: BLOOD PRESSURE ABNORMAL
  2. BENADRYL [Concomitant]
     Active Substance: DIPHENHYDRAMINE HYDROCHLORIDE
     Indication: BLOOD PRESSURE ABNORMAL
  3. PRILOSEC [Suspect]
     Active Substance: OMEPRAZOLE MAGNESIUM
     Indication: PHARYNGEAL DISORDER
     Route: 048
     Dates: start: 20170118, end: 20170118
  4. PREDNISONE. [Concomitant]
     Active Substance: PREDNISONE
     Indication: BLOOD PRESSURE ABNORMAL
  5. ANTI ITCH [Concomitant]
     Indication: BLOOD PRESSURE ABNORMAL
  6. AVEENO BATH [Concomitant]
     Indication: BLOOD PRESSURE ABNORMAL
  7. STATIN [Concomitant]
     Active Substance: UNSPECIFIED INGREDIENT
     Indication: BLOOD PRESSURE ABNORMAL

REACTIONS (4)
  - Pruritus generalised [Recovered/Resolved]
  - Expired product administered [Unknown]
  - Product use issue [Unknown]
  - Generalised erythema [Recovering/Resolving]

NARRATIVE: CASE EVENT DATE: 20170118
